FAERS Safety Report 15139509 (Version 1)
Quarter: 2018Q3

REPORT INFORMATION
  Report Type: Spontaneous
  Country: US (occurrence: US)
  Receive Date: 20180713
  Receipt Date: 20180713
  Transmission Date: 20181010
  Serious: Yes (Hospitalization)
  Sender: FDA-Public Use
  Company Number: US-TEVA-2018-US-923745

PATIENT
  Age: 52 Year
  Sex: Female

DRUGS (1)
  1. CLONAZEPAM. [Suspect]
     Active Substance: CLONAZEPAM
     Indication: ANXIETY
     Route: 065
     Dates: end: 20180702

REACTIONS (5)
  - Depression [Unknown]
  - Suicidal ideation [Unknown]
  - Drug effect decreased [Unknown]
  - Anxiety [Unknown]
  - Abdominal discomfort [Unknown]
